FAERS Safety Report 6501439-0 (Version None)
Quarter: 2009Q4

REPORT INFORMATION
  Report Type: 
  Country: None (occurrence: None)
  Receive Date: 20091215
  Receipt Date: 20091215
  Transmission Date: 20100525
  Serious: Yes (Other)
  Sender: FDA-Public Use
  Company Number: None

PATIENT
  Age: 51 Year
  Sex: Female
  Weight: 154.223 kg

DRUGS (5)
  1. LEVAQUIN [Suspect]
     Indication: BRONCHITIS
     Dosage: CAN'T REMEMBER DAILY PO
     Route: 048
     Dates: start: 20091001, end: 20091003
  2. SEROQUEL [Concomitant]
  3. SYMBALTA [Concomitant]
  4. DAILY MULTI VITAMIN [Concomitant]
  5. OMEGA 3 TABLETS [Concomitant]

REACTIONS (4)
  - ARTHRALGIA [None]
  - DIARRHOEA [None]
  - PRURITUS [None]
  - URTICARIA [None]
